FAERS Safety Report 5497725-6 (Version None)
Quarter: 2007Q4

REPORT INFORMATION
  Report Type: 
  Country: None (occurrence: None)
  Receive Date: 20071025
  Receipt Date: 20070214
  Transmission Date: 20080405
  Serious: No
  Sender: FDA-Public Use
  Company Number: A0639559A

PATIENT
  Age: 73 Year
  Sex: Female

DRUGS (13)
  1. ADVAIR DISKUS 100/50 [Suspect]
     Indication: ASTHMA
     Dosage: 1PUFF TWICE PER DAY
     Route: 055
     Dates: start: 20060101
  2. ALBUTEROL [Concomitant]
  3. LISINOPRIL [Concomitant]
  4. CLONIDINE [Concomitant]
  5. FUROSEMIDE [Concomitant]
  6. BENZONATATE [Concomitant]
  7. LORAZEPAM [Concomitant]
  8. NASONEX [Concomitant]
  9. ALLEGRA [Concomitant]
  10. ETHINYL ESTRADIOL TAB [Concomitant]
  11. MOBIC [Concomitant]
  12. IPRATROPIUM BROMIDE [Concomitant]
     Route: 045
  13. SINGULAIR [Concomitant]

REACTIONS (1)
  - COUGH [None]
